FAERS Safety Report 7223932-8 (Version None)
Quarter: 2011Q1

REPORT INFORMATION
  Report Type: 
  Country: None (occurrence: None)
  Receive Date: 20110113
  Receipt Date: 20101230
  Transmission Date: 20110831
  Serious: No
  Sender: FDA-Public Use
  Company Number: US-BIOGENIDEC-2010BI038018

PATIENT
  Age: 28 Year
  Sex: Female

DRUGS (1)
  1. TYSABRI [Suspect]
     Indication: MULTIPLE SCLEROSIS
     Route: 042
     Dates: start: 20100208

REACTIONS (6)
  - PAIN IN EXTREMITY [None]
  - MOOD SWINGS [None]
  - MIGRAINE [None]
  - FATIGUE [None]
  - HEADACHE [None]
  - SENSORY DISTURBANCE [None]
